FAERS Safety Report 5043066-0 (Version None)
Quarter: 2006Q3

REPORT INFORMATION
  Report Type: 
  Country: None (occurrence: None)
  Receive Date: 20060705
  Receipt Date: 20060531
  Transmission Date: 20061208
  Serious: Yes (Other)
  Sender: FDA-Public Use
  Company Number: FR-NOVOPROD-254465

PATIENT
  Age: 74 Year
  Sex: Female
  Weight: 70 kg

DRUGS (7)
  1. LEVEMIR [Suspect]
     Indication: INSULIN-REQUIRING TYPE II DIABETES MELLITUS
     Dosage: 26 IU, QD
     Route: 058
     Dates: start: 20051103, end: 20060302
  2. LASILIX [Concomitant]
  3. GLUCOPHAGE                         /00082701/ [Concomitant]
     Dosage: 3 G, QD
  4. AMARYL [Concomitant]
     Dosage: 6 MG, QD
  5. PREVISCAN [Concomitant]
  6. DIGITALINE NATIVELLE [Concomitant]
     Dosage: 2 G, QD
  7. SELECTOL [Concomitant]

REACTIONS (2)
  - BURNING SENSATION [None]
  - NODULE [None]
